FAERS Safety Report 9505444 (Version 1)
Quarter: 2013Q1

REPORT INFORMATION
  Report Type: Spontaneous
  Country: US (occurrence: None)
  Receive Date: 20130225
  Receipt Date: 20130225
  Transmission Date: 20140127
  Serious: No
  Sender: FDA-Public Use
  Company Number: 368950

PATIENT
  Age: 60 Year
  Sex: Female

DRUGS (6)
  1. VICTOZA (LIRAGLUTIDE) SOLUTION FOR INJECTION, 6 MG/ML [Suspect]
     Indication: PRODUCT USED FOR UNKNOWN INDICATION
     Route: 058
     Dates: start: 201210
  2. VITAMIN D (ERGOCALCIFEROL) [Concomitant]
  3. IBUPROFEN (IBUPROFEN) [Concomitant]
  4. CLONIDINE (CLONIDINE) [Concomitant]
  5. LANSOPRAZOLE 9LANSOPRAZOLE) [Concomitant]
  6. ZOFRAN (ONDANSETRON) [Concomitant]

REACTIONS (2)
  - Back pain [None]
  - Dysphonia [None]
